FAERS Safety Report 17774488 (Version 5)
Quarter: 2021Q2

REPORT INFORMATION
  Report Type: Report from Study
  Country: US (occurrence: US)
  Receive Date: 20200513
  Receipt Date: 20210505
  Transmission Date: 20210716
  Serious: Yes (Hospitalization, Other)
  Sender: FDA-Public Use
  Company Number: NVSC2020US124444

PATIENT
  Age: 13 Year
  Sex: Female

DRUGS (3)
  1. ANTITHYMOCYTE IMMUNOGLOBULIN [Suspect]
     Active Substance: THYMOCYTE IMMUNE GLOBULIN NOS
     Indication: APLASTIC ANAEMIA
     Dosage: UNK
     Route: 042
     Dates: start: 20200327
  2. NEORAL [Suspect]
     Active Substance: CYCLOSPORINE
     Indication: APLASTIC ANAEMIA
     Dosage: UNK
     Route: 048
     Dates: start: 20200327
  3. SB497115 [Suspect]
     Active Substance: ELTROMBOPAG
     Indication: APLASTIC ANAEMIA
     Dosage: UNK
     Route: 048
     Dates: start: 20200327

REACTIONS (11)
  - Stenotrophomonas infection [Unknown]
  - Vomiting [Not Recovered/Not Resolved]
  - Bacteraemia [Unknown]
  - Hypoxia [Unknown]
  - Decreased appetite [Unknown]
  - Pneumonitis [Unknown]
  - Pneumothorax [Unknown]
  - Cellulitis [Unknown]
  - Febrile neutropenia [Unknown]
  - Rash [Recovered/Resolved]
  - Nausea [Not Recovered/Not Resolved]

NARRATIVE: CASE EVENT DATE: 202004
